FAERS Safety Report 4502557-9 (Version None)
Quarter: 2004Q3

REPORT INFORMATION
  Report Type: 
  Country: None (occurrence: None)
  Receive Date: 20040928
  Receipt Date: 20040716
  Transmission Date: 20050211
  Serious: No
  Sender: FDA-Public Use
  Company Number: 04P-163-0267458-00

PATIENT
  Age: 62 Year
  Sex: Female
  Weight: 90.7194 kg

DRUGS (7)
  1. HUMIRA [Suspect]
     Indication: RHEUMATOID ARTHRITIS
     Dosage: 40 MG, 1 IN 2 WK, SUBCUTANEOUS
     Route: 058
     Dates: start: 20040615
  2. ATORVASTATIN CALCIUM [Concomitant]
  3. DYAZIDE [Concomitant]
  4. METOPROLOL TARTRATE [Concomitant]
  5. FOLIC ACID [Concomitant]
  6. MULTIVITAMIN [Concomitant]
  7. FISH OIL [Concomitant]

REACTIONS (2)
  - DRUG INEFFECTIVE [None]
  - MUSCULOSKELETAL STIFFNESS [None]
